FAERS Safety Report 9464586 (Version 2)
Quarter: 2013Q3

REPORT INFORMATION
  Report Type: Spontaneous
  Country: CA (occurrence: CA)
  Receive Date: 20130819
  Receipt Date: 20130924
  Transmission Date: 20140515
  Serious: Yes (Death)
  Sender: FDA-Public Use
  Company Number: CA-SANOFI-AVENTIS-2013SA081194

PATIENT
  Age: 47 Year
  Sex: Female
  Weight: 61 kg

DRUGS (3)
  1. TAXOTERE [Suspect]
     Indication: BREAST CANCER
     Dosage: FORM: SOLUTION INTRAVENOUS
     Route: 042
     Dates: start: 2012, end: 2012
  2. CYCLOPHOSPHAMIDE [Concomitant]
  3. NEUPOGEN [Concomitant]
     Dosage: FORM: SOLUTION INTRAVENOUS

REACTIONS (3)
  - Colitis [Fatal]
  - Intestinal perforation [Fatal]
  - Sepsis [Fatal]
